FAERS Safety Report 8868553 (Version 1)
Quarter: 2012Q4

REPORT INFORMATION
  Report Type: 
  Country: US (occurrence: US)
  Receive Date: 20121026
  Receipt Date: 20121026
  Transmission Date: 20130627
  Serious: No
  Sender: FDA-Public Use
  Company Number: US-B.I. PHARMACEUTICALS,INC./RIDGEFIELD-2012-BP-26260BP

PATIENT
  Sex: Female

DRUGS (6)
  1. TWYNSTA [Suspect]
     Indication: HYPERTENSION
     Route: 048
  2. CLARINEX [Concomitant]
     Indication: SINUS DISORDER
     Route: 048
  3. SINGULAIR [Concomitant]
     Indication: SINUS DISORDER
     Dosage: 10 mg
     Route: 048
  4. PROTONIX [Concomitant]
     Indication: GASTRIC DISORDER
     Route: 048
  5. CALCIUM [Concomitant]
     Route: 048
  6. MELOXICAM [Concomitant]
     Indication: GASTRIC DISORDER
     Route: 048

REACTIONS (5)
  - Asthenia [Recovered/Resolved]
  - Dizziness [Recovered/Resolved]
  - Pyrexia [Recovered/Resolved]
  - Heart rate abnormal [Recovered/Resolved]
  - Hypotension [Recovered/Resolved]
